FAERS Safety Report 5379269-5 (Version None)
Quarter: 2007Q3

REPORT INFORMATION
  Report Type: 
  Country: None (occurrence: None)
  Receive Date: 20070705
  Receipt Date: 20070625
  Transmission Date: 20080115
  Serious: Yes (Hospitalization, Other)
  Sender: FDA-Public Use
  Company Number: JP-PFIZER INC-2007034210

PATIENT
  Sex: Male

DRUGS (8)
  1. CABASER [Suspect]
     Indication: PARKINSON'S DISEASE
  2. PERMAX [Interacting]
     Indication: PARKINSON'S DISEASE
     Dosage: TEXT:500 TO 750UG
     Route: 048
  3. CARBIDOPA AND LEVODOPA [Concomitant]
     Indication: PARKINSON'S DISEASE
     Route: 048
     Dates: start: 20030718, end: 20070406
  4. SELEGILINE HYDROCHLORIDE [Concomitant]
     Indication: PARKINSON'S DISEASE
     Route: 048
     Dates: start: 20030718, end: 20070406
  5. AMLODIN [Concomitant]
     Route: 048
     Dates: start: 20030718, end: 20070406
  6. ARTANE [Concomitant]
     Route: 048
     Dates: start: 20031212, end: 20050415
  7. PURSENNID [Concomitant]
     Route: 048
  8. MAGNESIUM OXIDE [Concomitant]
     Route: 048

REACTIONS (4)
  - CARDIAC VALVE DISEASE [None]
  - DRUG INTERACTION [None]
  - DYSKINESIA [None]
  - POSTURE ABNORMAL [None]
